FAERS Safety Report 6136421-9 (Version None)
Quarter: 2009Q1

REPORT INFORMATION
  Report Type: 
  Country: None (occurrence: None)
  Receive Date: 20090325
  Receipt Date: 20090312
  Transmission Date: 20090719
  Serious: Yes (Other)
  Sender: FDA-Public Use
  Company Number: 8044084

PATIENT
  Sex: Female

DRUGS (2)
  1. KEPPRA [Suspect]
  2. NEURONTIN [Concomitant]

REACTIONS (3)
  - HEADACHE [None]
  - OFF LABEL USE [None]
  - THERAPEUTIC AGENT TOXICITY [None]
